FAERS Safety Report 9401328 (Version 1)
Quarter: 2013Q3

REPORT INFORMATION
  Report Type: Report from Study
  Country: US (occurrence: US)
  Receive Date: 20130715
  Receipt Date: 20130715
  Transmission Date: 20140515
  Serious: No
  Sender: FDA-Public Use
  Company Number: US-009507513-1307USA006409

PATIENT
  Age: 34 Year
  Sex: Female
  Weight: 77.55 kg

DRUGS (1)
  1. IMPLANON [Suspect]
     Dosage: UNK
     Route: 059
     Dates: start: 20100713, end: 20130711

REACTIONS (1)
  - Medical device removal [Unknown]
